FAERS Safety Report 12472828 (Version 3)
Quarter: 2018Q4

REPORT INFORMATION
  Report Type: Spontaneous
  Country: US (occurrence: US)
  Receive Date: 20160616
  Receipt Date: 20181105
  Transmission Date: 20190204
  Serious: No
  Sender: FDA-Public Use
  Company Number: US-JAZZ-JPI-P-023302

PATIENT
  Sex: Male
  Weight: 88.44 kg

DRUGS (2)
  1. XYREM [Suspect]
     Active Substance: SODIUM OXYBATE
     Indication: INSOMNIA
     Dosage: 2.25 G, BID
     Route: 048
     Dates: start: 201205, end: 2012
  2. XYREM [Suspect]
     Active Substance: SODIUM OXYBATE
     Dosage: 3.25 G, QD
     Route: 048
     Dates: start: 2012

REACTIONS (3)
  - Fluid retention [Recovered/Resolved]
  - Blood pressure increased [Recovered/Resolved]
  - Gastrointestinal disorder [Unknown]

NARRATIVE: CASE EVENT DATE: 2012
